FAERS Safety Report 7048306-4 (Version None)
Quarter: 2010Q4

REPORT INFORMATION
  Report Type: 
  Country: None (occurrence: None)
  Receive Date: 20101014
  Receipt Date: 20101014
  Transmission Date: 20110411
  Serious: Yes (Hospitalization)
  Sender: FDA-Public Use
  Company Number: None

PATIENT
  Age: 59 Year
  Sex: Male
  Weight: 78.5 kg

DRUGS (5)
  1. CASPOFUNGIN ACETATE [Suspect]
     Indication: WHITE BLOOD CELL COUNT INCREASED
     Dosage: 50MG DAILY IV
     Route: 042
     Dates: start: 20101005, end: 20101008
  2. AZACTAM [Concomitant]
  3. DOBUTAMINE [Concomitant]
  4. PEPCID [Concomitant]
  5. INSULIN DRIP [Concomitant]

REACTIONS (4)
  - ALANINE AMINOTRANSFERASE INCREASED [None]
  - ASPARTATE AMINOTRANSFERASE INCREASED [None]
  - NEPHROPATHY TOXIC [None]
  - RENAL FAILURE ACUTE [None]
